FAERS Safety Report 26055723 (Version 1)
Quarter: 2025Q4

REPORT INFORMATION
  Report Type: Spontaneous
  Country: BR (occurrence: BR)
  Receive Date: 20251117
  Receipt Date: 20251117
  Transmission Date: 20260118
  Serious: Yes (Hospitalization)
  Sender: IPSEN BIOPHARMACEUTICALS, INC.
  Company Number: BR-IPSEN Group, Research and Development-2025-28217

PATIENT
  Age: 48 Year
  Sex: Male

DRUGS (1)
  1. LANREOTIDE ACETATE [Suspect]
     Active Substance: LANREOTIDE ACETATE
     Indication: Product used for unknown indication

REACTIONS (5)
  - Pyrexia [Unknown]
  - Pain in extremity [Unknown]
  - Hepatic enzyme increased [Unknown]
  - Injection site pain [Unknown]
  - Injection site nodule [Unknown]

NARRATIVE: CASE EVENT DATE: 20220301
